FAERS Safety Report 13119330 (Version 1)
Quarter: 2017Q1

REPORT INFORMATION
  Report Type: Report from Study
  Country: US (occurrence: US)
  Receive Date: 20170116
  Receipt Date: 20170116
  Transmission Date: 20170428
  Serious: Yes (Other)
  Sender: FDA-Public Use
  Company Number: US-SAOL THERAPEUTICS-2017SAO00093

PATIENT
  Sex: Male

DRUGS (5)
  1. DILAUDID [Suspect]
     Active Substance: HYDROMORPHONE HYDROCHLORIDE
     Dosage: 0.4006 MG, \DAY
     Route: 037
     Dates: start: 20160707, end: 20161004
  2. BACLOFEN. [Suspect]
     Active Substance: BACLOFEN
     Dosage: 400.6 ?G, \DAY
     Route: 037
     Dates: start: 20160707, end: 20161004
  3. BACLOFEN. [Suspect]
     Active Substance: BACLOFEN
     Route: 048
  4. BACLOFEN. [Suspect]
     Active Substance: BACLOFEN
     Dosage: 368.4 ?G, \DAY
     Route: 037
     Dates: start: 20160325, end: 20160707
  5. DILAUDID [Suspect]
     Active Substance: HYDROMORPHONE HYDROCHLORIDE
     Dosage: 0.3684 MG, \DAY
     Route: 037
     Dates: start: 20160325, end: 20160707

REACTIONS (2)
  - Mental status changes [Not Recovered/Not Resolved]
  - Fatigue [Not Recovered/Not Resolved]

NARRATIVE: CASE EVENT DATE: 20160805
